FAERS Safety Report 14949872 (Version 8)
Quarter: 2019Q1

REPORT INFORMATION
  Report Type: Spontaneous
  Country: US (occurrence: US)
  Receive Date: 20180530
  Receipt Date: 20190324
  Transmission Date: 20190417
  Serious: Yes (Hospitalization, Other)
  Sender: FDA-Public Use
  Company Number: US-BRISTOL-MYERS SQUIBB COMPANY-BMS-2018-049735

PATIENT
  Sex: Female

DRUGS (1)
  1. ORENCIA [Suspect]
     Active Substance: ABATACEPT
     Indication: RHEUMATOID ARTHRITIS
     Dosage: 125 MG, QWK
     Route: 058
     Dates: start: 201812

REACTIONS (9)
  - Respiratory tract infection [Recovering/Resolving]
  - Malaise [Unknown]
  - Wound [Not Recovered/Not Resolved]
  - Localised infection [Unknown]
  - Sinusitis [Unknown]
  - Oropharyngeal pain [Unknown]
  - Product dose omission [Unknown]
  - Pneumonia [Unknown]
  - Cough [Unknown]
